FAERS Safety Report 25266978 (Version 1)
Quarter: 2025Q2

REPORT INFORMATION
  Report Type: Spontaneous
  Country: US (occurrence: US)
  Receive Date: 20250505
  Receipt Date: 20250505
  Transmission Date: 20250717
  Serious: No
  Sender: ROCHE
  Company Number: US-ROCHE-10000268658

PATIENT
  Sex: Female
  Weight: 69.85 kg

DRUGS (3)
  1. ITOVEBI [Suspect]
     Active Substance: INAVOLISIB
     Indication: Hormone receptor positive breast cancer
     Route: 048
     Dates: start: 20250410
  2. POTASSIUM [Concomitant]
     Active Substance: POTASSIUM
  3. IBRANCE [Concomitant]
     Active Substance: PALBOCICLIB
     Indication: Hormone receptor positive breast cancer
     Dosage: MORE DOSAGE INFORMATION: 21 DAYS ON AND 7 DAYS OFF

REACTIONS (2)
  - Product dispensing error [Unknown]
  - No adverse event [Unknown]
